FAERS Safety Report 24580409 (Version 1)
Quarter: 2024Q4

REPORT INFORMATION
  Report Type: Spontaneous
  Country: GB (occurrence: GB)
  Receive Date: 20241105
  Receipt Date: 20241105
  Transmission Date: 20250114
  Serious: Yes (Other)
  Sender: MYLAN
  Company Number: GB-MHRA-TPP23283584C26334949YC1730212909119

PATIENT
  Age: 72 Year
  Sex: Female
  Weight: 111 kg

DRUGS (16)
  1. AMLODIPINE [Suspect]
     Active Substance: AMLODIPINE BESYLATE
     Indication: Ill-defined disorder
     Dosage: 5 MILLIGRAM, QD
     Route: 065
     Dates: start: 20241017
  2. ALLEVYN AG [Concomitant]
     Indication: Ill-defined disorder
     Dosage: 1 DOSAGE FORM, Q3D (USE ONE EVERY 3 DAYS, CAN BE CUT TO ADJUST THE)
     Route: 065
     Dates: start: 20241025
  3. CLARITHROMYCIN [Concomitant]
     Active Substance: CLARITHROMYCIN
     Indication: Ill-defined disorder
     Dosage: 10 MILLIGRAM, BID (10ML  SPOON EVERY 12 HRS)
     Route: 065
     Dates: start: 20241025
  4. LORATADINE [Concomitant]
     Active Substance: LORATADINE
     Indication: Ill-defined disorder
     Dosage: 1 DOSAGE FORM, QD (TAKE ONE DAILY)
     Route: 065
     Dates: start: 20241029
  5. RAMIPRIL [Concomitant]
     Active Substance: RAMIPRIL
     Indication: Ill-defined disorder
     Dosage: 1 DOSAGE FORM, QD (TAKE ONE DAILY)
     Route: 065
     Dates: start: 20241029
  6. VENTOLIN [Concomitant]
     Active Substance: ALBUTEROL SULFATE
     Indication: Ill-defined disorder
     Dosage: 2 DOSAGE FORM, PRN (INHALE 2 DOSES AS NEEDED)
     Route: 055
     Dates: start: 20230829
  7. LANOLIN\LIGHT MINERAL OIL\PARAFFIN [Concomitant]
     Active Substance: LANOLIN\LIGHT MINERAL OIL\PARAFFIN
     Indication: Ill-defined disorder
     Dosage: UNK , PRN (APPLY AS NEEDED)
     Route: 065
     Dates: start: 20231025, end: 20240911
  8. POLYETHYLENE GLYCOL 3350\POTASSIUM CHLORIDE\SODIUM BICARBONATE\SODIUM [Concomitant]
     Active Substance: POLYETHYLENE GLYCOL 3350\POTASSIUM CHLORIDE\SODIUM BICARBONATE\SODIUM CHLORIDE
     Indication: Ill-defined disorder
     Dosage: UNK , PRN (TAKE 1-2 DAILY AS NEEDED)
     Route: 065
     Dates: start: 20231211, end: 20240911
  9. CARBOCYSTEINE [Concomitant]
     Active Substance: CARBOCYSTEINE
     Indication: Ill-defined disorder
     Dosage: 375 MILLIGRAM, TID (USE AS DIRECTED 375MG (7.5ML) THREE TIMES DAILY)
     Route: 065
     Dates: start: 20240301
  10. FENTANYL [Concomitant]
     Active Substance: FENTANYL
     Indication: Ill-defined disorder
     Dosage: 1 DOSAGE FORM, Q3D (APPLY ONE EVERY 72 HOURS)
     Route: 065
     Dates: start: 20240301, end: 20240820
  11. FUROSEMIDE [Concomitant]
     Active Substance: FUROSEMIDE
     Indication: Ill-defined disorder
     Dosage: 40 MILLIGRAM, BID (USE 40MG (5ML) TWICE DAILY)
     Route: 065
     Dates: start: 20240301
  12. LANSOPRAZOLE [Concomitant]
     Active Substance: LANSOPRAZOLE
     Indication: Ill-defined disorder
     Dosage: 1 DOSAGE FORM, AM (TAKE ONE ONCE DAILY IN THE MORNING)
     Route: 065
     Dates: start: 20240301
  13. MORPHINE SULFATE [Concomitant]
     Active Substance: MORPHINE SULFATE
     Indication: Ill-defined disorder
     Dosage: UNK, Q4H (15-20MG EVERY 4 HOURS WHEN NECESSARY)
     Route: 065
     Dates: start: 20240301, end: 20240820
  14. ONDANSETRON [Concomitant]
     Active Substance: ONDANSETRON
     Indication: Ill-defined disorder
     Dosage: 4 MILLIGRAM, Q8H (4MG WHEN REQUIRED UP TO EVERY 8 HOURS)
     Route: 065
     Dates: start: 20240301, end: 20240820
  15. QVAR [Concomitant]
     Active Substance: BECLOMETHASONE DIPROPIONATE
     Indication: Ill-defined disorder
     Dosage: 2 DOSAGE FORM, BID (INHALE 2 DOSE TWICE DAILY)
     Route: 055
     Dates: start: 20240301
  16. ACETAMINOPHEN [Concomitant]
     Active Substance: ACETAMINOPHEN
     Indication: Ill-defined disorder
     Dosage: 1 GRAM, PRN (1GRAM (20ML) EVERY 4-6 HOURS WHEN REQUIRED MAX)
     Route: 065
     Dates: start: 20240307

REACTIONS (2)
  - Lip swelling [Not Recovered/Not Resolved]
  - Rash [Recovering/Resolving]

NARRATIVE: CASE EVENT DATE: 20241025
